FAERS Safety Report 5873110-X (Version None)
Quarter: 2008Q3

REPORT INFORMATION
  Report Type: 
  Country: None (occurrence: None)
  Receive Date: 20080905
  Receipt Date: 20080905
  Transmission Date: 20090109
  Serious: Yes (Other)
  Sender: FDA-Public Use
  Company Number: None

PATIENT
  Age: 36 Year
  Sex: Male
  Weight: 68.0396 kg

DRUGS (2)
  1. VALPROIC ACID [Suspect]
     Indication: CONVULSION
     Dosage: 500MG BID PO
     Route: 048
     Dates: start: 20071002
  2. VALPROIC ACID [Suspect]
     Indication: CONVULSION
     Dosage: 500MG BID PO
     Route: 048
     Dates: start: 20080830

REACTIONS (4)
  - NAUSEA [None]
  - PAIN [None]
  - PHARMACEUTICAL PRODUCT COMPLAINT [None]
  - VOMITING [None]
